FAERS Safety Report 7564389-7 (Version None)
Quarter: 2011Q2

REPORT INFORMATION
  Report Type: 
  Country: None (occurrence: None)
  Receive Date: 20110622
  Receipt Date: 20110609
  Transmission Date: 20111010
  Serious: Yes (Hospitalization)
  Sender: FDA-Public Use
  Company Number: PHHY2011FR06961

PATIENT
  Sex: Female
  Weight: 63.8 kg

DRUGS (4)
  1. CLONAZEPAM [Concomitant]
     Dosage: 0.25 DF, QD
     Dates: start: 20100601
  2. AFINITOR [Suspect]
     Dosage: 10 MG, QD
     Dates: start: 20101201, end: 20110119
  3. AFINITOR [Suspect]
     Indication: RENAL CANCER METASTATIC
     Dosage: 1 TABLET
     Route: 048
     Dates: start: 20100901, end: 20110101
  4. ATORVASTATIN CALCIUM [Concomitant]
     Indication: HYPERLIPIDAEMIA
     Dosage: 40 MG, QD
     Dates: start: 19870101

REACTIONS (8)
  - IMPETIGO [None]
  - ECZEMA [None]
  - SKIN ULCER [None]
  - PRURITUS [None]
  - OEDEMA PERIPHERAL [None]
  - RASH [None]
  - URTICARIA [None]
  - SKIN LESION [None]
